FAERS Safety Report 10888857 (Version 3)
Quarter: 2015Q2

REPORT INFORMATION
  Report Type: Other
  Country: JP (occurrence: JP)
  Receive Date: 20150305
  Receipt Date: 20150529
  Transmission Date: 20150821
  Serious: Yes (Hospitalization, Other)
  Sender: FDA-Public Use
  Company Number: JP-TAKEDA-2015TJP003113

PATIENT
  Age: 79 Year
  Sex: Female
  Weight: 45 kg

DRUGS (30)
  1. TAKEPRON OD TABLETS 15 [Suspect]
     Active Substance: LANSOPRAZOLE
     Indication: HAEMORRHAGE PROPHYLAXIS
     Dosage: 15 MG, QD
     Route: 048
     Dates: start: 20140827, end: 20150223
  2. HEPARIN [Concomitant]
     Active Substance: HEPARIN SODIUM
     Dosage: 10000 IU, UNK
     Route: 050
     Dates: start: 20140827, end: 20140911
  3. WARFARIN POTASSIUM [Concomitant]
     Active Substance: WARFARIN POTASSIUM
     Dosage: UNK
     Route: 048
     Dates: start: 20140827
  4. VASOLAN                            /00014302/ [Concomitant]
     Active Substance: VERAPAMIL HYDROCHLORIDE
     Dosage: 40 MG, TID
     Route: 048
     Dates: start: 20140827, end: 20140917
  5. LANIRAPID [Concomitant]
     Active Substance: METILDIGOXIN
     Dosage: 0.05 MG, QD
     Route: 048
     Dates: start: 20141015, end: 20141023
  6. DIART [Concomitant]
     Active Substance: AZOSEMIDE
     Dosage: 60 MG, QD
     Route: 048
     Dates: start: 20141015
  7. HANP [Concomitant]
     Active Substance: CARPERITIDE
     Dosage: 2000 ?G, UNK
     Route: 050
     Dates: start: 20140827, end: 20140901
  8. MAINTATE [Concomitant]
     Active Substance: BISOPROLOL FUMARATE
     Dosage: 2.5 MG, QD
     Route: 048
     Dates: start: 20140902, end: 20140910
  9. MEYLON [Concomitant]
     Active Substance: SODIUM BICARBONATE
     Dosage: 20 ML, UNK
     Route: 050
     Dates: start: 20140916, end: 20140916
  10. FOSFOMYCIN SODIUM [Concomitant]
     Active Substance: FOSFOMYCIN SODIUM
     Dosage: 2 G, UNK
     Route: 050
     Dates: start: 20140916, end: 20140916
  11. VASOLAN                            /00014302/ [Concomitant]
     Active Substance: VERAPAMIL HYDROCHLORIDE
     Dosage: 40 MG, QD
     Route: 048
     Dates: start: 20141024, end: 20141113
  12. MAINTATE [Concomitant]
     Active Substance: BISOPROLOL FUMARATE
     Dosage: 5 MG, QD
     Route: 048
     Dates: start: 20140911
  13. ALDACTONE [Concomitant]
     Active Substance: SPIRONOLACTONE
     Dosage: 50 MG, QD
     Route: 048
     Dates: start: 20140830, end: 20140917
  14. DIART [Concomitant]
     Active Substance: AZOSEMIDE
     Dosage: 60 MG, QD
     Route: 048
     Dates: start: 20140902, end: 20140917
  15. DIGOSIN [Concomitant]
     Active Substance: DIGOXIN
     Dosage: 0.25 MG, UNK
     Route: 050
     Dates: start: 20140827, end: 20140827
  16. LOW MOLECULAR DEXTRAN L [Concomitant]
     Dosage: 250 ML, UNK
     Route: 050
     Dates: start: 20140916, end: 20140916
  17. LUPRAC [Concomitant]
     Active Substance: TORSEMIDE
     Dosage: 4 MG, QD
     Route: 048
     Dates: start: 20140918, end: 20141014
  18. COVERSYL                           /00790702/ [Concomitant]
     Active Substance: PERINDOPRIL
     Dosage: 4 MG, QD
     Route: 048
     Dates: start: 20140831
  19. ATORVASTATIN                       /01326102/ [Concomitant]
     Active Substance: ATORVASTATIN
     Dosage: 10 MG, QD
     Route: 048
     Dates: start: 20140917, end: 20141024
  20. VASOLAN                            /00014302/ [Concomitant]
     Active Substance: VERAPAMIL HYDROCHLORIDE
     Dosage: 5 MG, UNK
     Route: 050
     Dates: start: 20140827, end: 20140827
  21. SULBACILLIN [Concomitant]
     Active Substance: AMPICILLIN SODIUM\SULBACTAM SODIUM
     Dosage: 1.5 G, UNK
     Route: 050
     Dates: start: 20140829, end: 20140903
  22. BISOPROLOL [Concomitant]
     Active Substance: BISOPROLOL
     Dosage: 4 MG, UNK
     Route: 062
     Dates: start: 20140828, end: 20140910
  23. LANIRAPID [Concomitant]
     Active Substance: METILDIGOXIN
     Dosage: 0.05 MG, QD
     Route: 048
     Dates: start: 20141114
  24. ONOACT [Concomitant]
     Active Substance: LANDIOLOL HYDROCHLORIDE
     Dosage: 50 MG, UNK
     Route: 050
     Dates: start: 20140827, end: 20140902
  25. HALFDIGOXIN [Concomitant]
     Active Substance: DIGOXIN
     Dosage: 0.125 MG, QD
     Route: 048
     Dates: start: 20140828, end: 20140920
  26. LANIRAPID [Concomitant]
     Active Substance: METILDIGOXIN
     Dosage: 0.1 MG, QD
     Route: 048
     Dates: start: 20141024, end: 20141113
  27. ALDACTONE [Concomitant]
     Active Substance: SPIRONOLACTONE
     Dosage: 25 MG, QD
     Route: 048
     Dates: start: 20141015
  28. ACARDI [Concomitant]
     Dosage: 1.25 MG, BID
     Route: 048
     Dates: start: 20141015, end: 20141226
  29. ACARDI [Concomitant]
     Dosage: 1.25 MG, QD
     Route: 048
     Dates: start: 20141227
  30. LASIX [Concomitant]
     Active Substance: FUROSEMIDE
     Dosage: 20 MG, UNK
     Route: 050
     Dates: start: 20140830, end: 20140902

REACTIONS (2)
  - Diarrhoea [Recovered/Resolved]
  - Acute kidney injury [Recovered/Resolved]

NARRATIVE: CASE EVENT DATE: 20150201
